FAERS Safety Report 10733098 (Version 2)
Quarter: 2015Q1

REPORT INFORMATION
  Report Type: Spontaneous
  Country: FR (occurrence: None)
  Receive Date: 20150120
  Receipt Date: 20150122
  Transmission Date: 20150721
  Serious: Yes (Other)
  Sender: FDA-Public Use
  Company Number: ADR-2015-00078

PATIENT

DRUGS (1)
  1. BACLOFEN (UNKNOWN) [Suspect]
     Active Substance: BACLOFEN

REACTIONS (2)
  - Intentional product use issue [None]
  - Drug abuse [None]
